FAERS Safety Report 19555245 (Version 1)
Quarter: 2021Q3

REPORT INFORMATION
  Report Type: Spontaneous
  Country: CN (occurrence: CN)
  Receive Date: 20210715
  Receipt Date: 20210715
  Transmission Date: 20211014
  Serious: Yes (Other)
  Sender: FDA-Public Use
  Company Number: CN-STRIDES ARCOLAB LIMITED-2021SP024867

PATIENT
  Age: 19 Year
  Sex: Male

DRUGS (9)
  1. IMATINIB. [Suspect]
     Active Substance: IMATINIB MESYLATE
     Dosage: UNK, RECEIVED A 2 COURSES (TOTAL 4 COURSES)
     Route: 065
     Dates: start: 2018
  2. VINORELBINE [Suspect]
     Active Substance: VINORELBINE TARTRATE
     Indication: PRECURSOR B-LYMPHOBLASTIC LYMPHOMA
     Dosage: UNK, RECEIVED A 2 COURSES
     Route: 065
     Dates: start: 2018
  3. IMATINIB. [Suspect]
     Active Substance: IMATINIB MESYLATE
     Indication: PRECURSOR B-LYMPHOBLASTIC LYMPHOMA
     Dosage: UNK, RECEIVED A 2 COURSES
     Route: 065
     Dates: start: 2018
  4. DAUNORUBICIN [Suspect]
     Active Substance: DAUNORUBICIN
     Indication: PRECURSOR B-LYMPHOBLASTIC LYMPHOMA
     Dosage: UNK, RECEIVED A  2 COURSES
     Route: 065
     Dates: start: 2018
  5. CLARITHROMYCIN. [Suspect]
     Active Substance: CLARITHROMYCIN
     Indication: PRECURSOR B-LYMPHOBLASTIC LYMPHOMA
     Dosage: UNK, RECEIVED 1 COURSE OF THERAPY
     Route: 065
     Dates: start: 2018
  6. PREDNISOLONE. [Suspect]
     Active Substance: PREDNISOLONE
     Dosage: UNK, RECEIVED A 2 COURSES (TOTAL 4 COURSES)
     Route: 065
     Dates: start: 2018
  7. DAUNORUBICIN [Suspect]
     Active Substance: DAUNORUBICIN
     Dosage: UNK, RECEIVED A 2 COURSES (TOTAL 4 COURSES)
     Dates: start: 2018
  8. PREDNISOLONE. [Suspect]
     Active Substance: PREDNISOLONE
     Indication: PRECURSOR B-LYMPHOBLASTIC LYMPHOMA
     Dosage: UNK, RECEIVED A 2 COURSES
     Route: 065
     Dates: start: 2018
  9. VINORELBINE [Suspect]
     Active Substance: VINORELBINE TARTRATE
     Dosage: UNK, RECEIVED A 2 COURSES (TOTAL 4 COURSES)
     Route: 065
     Dates: start: 2018

REACTIONS (3)
  - Nausea [Unknown]
  - Off label use [Unknown]
  - Pancytopenia [Unknown]

NARRATIVE: CASE EVENT DATE: 2018
